FAERS Safety Report 18618112 (Version 1)
Quarter: 2020Q4

REPORT INFORMATION
  Report Type: Spontaneous
  Country: US (occurrence: US)
  Receive Date: 20201210
  Receipt Date: 20201210
  Transmission Date: 20210114
  Serious: Yes (Hospitalization)
  Sender: FDA-Public Use
  Company Number: None

PATIENT
  Age: 60 Year
  Sex: Male
  Weight: 147.3 kg

DRUGS (3)
  1. FLUDARABINE [Concomitant]
     Active Substance: FLUDARABINE PHOSPHATE
  2. YESCARTA [Suspect]
     Active Substance: AXICABTAGENE CILOLEUCEL
  3. CYCLOPHASPHAMIDE [Concomitant]
     Active Substance: CYCLOPHOSPHAMIDE

REACTIONS (8)
  - Cytokine release syndrome [None]
  - C-reactive protein increased [None]
  - Pyrexia [None]
  - Hypotension [None]
  - Fatigue [None]
  - Malaise [None]
  - Myalgia [None]
  - Serum ferritin increased [None]

NARRATIVE: CASE EVENT DATE: 20200202
